FAERS Safety Report 23567708 (Version 1)
Quarter: 2024Q1

REPORT INFORMATION
  Report Type: Report from Study
  Country: US (occurrence: US)
  Receive Date: 20240226
  Receipt Date: 20240226
  Transmission Date: 20240410
  Serious: Yes (Hospitalization, Other)
  Sender: FDA-Public Use
  Company Number: US-ABBVIE-5652393

PATIENT
  Sex: Male

DRUGS (1)
  1. RINVOQ [Suspect]
     Active Substance: UPADACITINIB
     Indication: Rheumatoid arthritis
     Route: 048
     Dates: start: 20230420

REACTIONS (4)
  - Coronavirus infection [Recovering/Resolving]
  - Anaphylactic shock [Recovered/Resolved]
  - Pneumonia bacterial [Unknown]
  - Metapneumovirus infection [Recovering/Resolving]
